FAERS Safety Report 8216778-5 (Version None)
Quarter: 2012Q1

REPORT INFORMATION
  Report Type: 
  Country: None (occurrence: None)
  Receive Date: 20120316
  Receipt Date: 20120309
  Transmission Date: 20120608
  Serious: Yes (Other)
  Sender: FDA-Public Use
  Company Number: PL-ASTRAZENECA-2012SE14808

PATIENT
  Age: 51 Year
  Sex: Female

DRUGS (1)
  1. CRESTOR [Suspect]
     Indication: HYPERLIPIDAEMIA
     Route: 048
     Dates: start: 20120226, end: 20120227

REACTIONS (5)
  - ABDOMINAL PAIN [None]
  - HEADACHE [None]
  - RHABDOMYOLYSIS [None]
  - MYALGIA [None]
  - HAEMATURIA [None]
